FAERS Safety Report 6976066-1 (Version None)
Quarter: 2010Q3

REPORT INFORMATION
  Report Type: 
  Country: None (occurrence: None)
  Receive Date: 20100910
  Receipt Date: 20090423
  Transmission Date: 20110219
  Serious: No
  Sender: FDA-Public Use
  Company Number: US-WYE-H08917509

PATIENT
  Age: 23 Year
  Sex: Female

DRUGS (2)
  1. LYBREL [Suspect]
     Indication: CONTRACEPTION
     Route: 048
     Dates: start: 20090326, end: 20090409
  2. LEXAPRO [Suspect]
     Dosage: UNKNOWN
     Route: 065
     Dates: start: 20090326, end: 20090402

REACTIONS (3)
  - ABDOMINAL PAIN LOWER [None]
  - NAUSEA [None]
  - UTERINE PAIN [None]
